FAERS Safety Report 25934657 (Version 2)
Quarter: 2025Q4

REPORT INFORMATION
  Report Type: Spontaneous
  Country: US (occurrence: US)
  Receive Date: 20251017
  Receipt Date: 20251017
  Transmission Date: 20260118
  Serious: No
  Sender: SANOFI AVENTIS
  Company Number: US-SANOFI-02688679

PATIENT
  Age: 12 Year
  Sex: Male

DRUGS (1)
  1. QFITLIA [Suspect]
     Active Substance: FITUSIRAN
     Dosage: 50 MG, QM
     Route: 065

REACTIONS (1)
  - Gallbladder disorder [Unknown]
